FAERS Safety Report 22042059 (Version 3)
Quarter: 2023Q1

REPORT INFORMATION
  Report Type: Spontaneous
  Country: US (occurrence: US)
  Receive Date: 20230227
  Receipt Date: 20230303
  Transmission Date: 20230418
  Serious: Yes (Hospitalization)
  Sender: FDA-Public Use
  Company Number: US-Vifor (International) Inc.-VIT-2023-01299

PATIENT
  Age: 77 Year
  Sex: Female

DRUGS (25)
  1. VELTASSA [Suspect]
     Active Substance: PATIROMER
     Indication: Hyperkalaemia
     Dosage: DISSOLVE CONTENTS OF 1 PACKET INTO 1/3 CUP OF WATER AND DRINK FULL AMOUNT ONCE DAILY AS DIRECTED.
     Route: 048
     Dates: start: 20161129
  2. ALENDRONATE [Concomitant]
     Active Substance: ALENDRONATE SODIUM
  3. ALLOPURINOL [Concomitant]
     Active Substance: ALLOPURINOL
  4. ASPIRIN [Concomitant]
     Active Substance: ASPIRIN
     Dosage: CHEWABLE
  5. ATORVASTATIN [Concomitant]
     Active Substance: ATORVASTATIN
  6. CLONIDINE [Concomitant]
     Active Substance: CLONIDINE
  7. DOCUSATE SODIUM [Concomitant]
     Active Substance: DOCUSATE SODIUM
  8. FIBER FORMULA [Concomitant]
  9. FLUTICASONE [Concomitant]
     Active Substance: FLUTICASONE
     Dosage: SPRAY
  10. FUROSEMIDE [Concomitant]
     Active Substance: FUROSEMIDE
  11. GABAPENTIN [Concomitant]
     Active Substance: GABAPENTIN
  12. GABAPENTIN [Concomitant]
     Active Substance: GABAPENTIN
  13. HYDRALAZINE [Concomitant]
     Active Substance: HYDRALAZINE HYDROCHLORIDE
  14. LIPITOR [Concomitant]
     Active Substance: ATORVASTATIN CALCIUM
  15. LORAZEPAM [Concomitant]
     Active Substance: LORAZEPAM
  16. MECLIZINE [Concomitant]
     Active Substance: MECLIZINE HYDROCHLORIDE
  17. METOPROLOL TARTRATE [Concomitant]
     Active Substance: METOPROLOL TARTRATE
  18. VITAMINS [Concomitant]
     Active Substance: VITAMINS
     Dosage: 50 AND OVER
  19. PEPCID AC [Concomitant]
     Active Substance: FAMOTIDINE
  20. COLCHICINE [Concomitant]
     Active Substance: COLCHICINE
  21. TRAMADOL HCL [Concomitant]
     Active Substance: TRAMADOL HYDROCHLORIDE
  22. SODIUM BICARBONATE [Concomitant]
     Active Substance: SODIUM BICARBONATE
  23. ALBUTEROL [Concomitant]
     Active Substance: ALBUTEROL
  24. VITAMIN D3 [Concomitant]
     Active Substance: CHOLECALCIFEROL
  25. PREMARIN [Concomitant]
     Active Substance: ESTROGENS, CONJUGATED

REACTIONS (3)
  - Hip arthroplasty [Unknown]
  - Gastroenteritis viral [Unknown]
  - Product dose omission issue [Unknown]

NARRATIVE: CASE EVENT DATE: 20230101
